FAERS Safety Report 16450566 (Version 1)
Quarter: 2019Q3

REPORT INFORMATION
  Report Type: Spontaneous
  Country: US (occurrence: US)
  Receive Date: 20190618
  Receipt Date: 20190618
  Transmission Date: 20191004
  Serious: Yes (Hospitalization)
  Sender: FDA-Public Use
  Company Number: None

PATIENT
  Sex: Female

DRUGS (2)
  1. WARFARIN, FUROSEMIDE, CITALOPRAM, RANTIDINE [Concomitant]
  2. SILDENAFIL. [Suspect]
     Active Substance: SILDENAFIL
     Indication: PULMONARY ARTERIAL HYPERTENSION
     Dosage: ?          OTHER FREQUENCY:3 TIMES DAILY;?
     Route: 048
     Dates: start: 20140107

REACTIONS (3)
  - Lung disorder [None]
  - Product dose omission [None]
  - Condition aggravated [None]
